FAERS Safety Report 12000039 (Version 2)
Quarter: 2016Q1

REPORT INFORMATION
  Report Type: Spontaneous
  Country: BE (occurrence: BE)
  Receive Date: 20160204
  Receipt Date: 20160211
  Transmission Date: 20160526
  Serious: Yes (Hospitalization, Other)
  Sender: FDA-Public Use
  Company Number: BE-TEVA-631089ISR

PATIENT
  Age: 58 Year
  Sex: Male

DRUGS (4)
  1. TEMOZOLOMIDE. [Suspect]
     Active Substance: TEMOZOLOMIDE
     Indication: GLIOBLASTOMA MULTIFORME
     Dosage: 75 MG/M2 DAILY; OVER A PERIOD OF 6 WEEKS
     Route: 048
     Dates: start: 201005
  2. TEMOZOLOMIDE. [Suspect]
     Active Substance: TEMOZOLOMIDE
     Indication: GLIOBLASTOMA MULTIFORME
     Dosage: 100 MG/M2 DAILY; FOR 21 CONSECUTIVE DAYS OF A 28-DAY CYCLE. A TOTAL OF 14 CYCLES.
     Route: 048
     Dates: end: 201112
  3. TERRAMYCINE [Concomitant]
     Active Substance: OXYTETRACYCLINE
     Indication: EYE INFECTION
     Route: 061
  4. TEMOZOLOMIDE. [Suspect]
     Active Substance: TEMOZOLOMIDE
     Indication: GLIOBLASTOMA MULTIFORME
     Dosage: 150 MG/M2 DAILY; FOR 5 DAYS OF AN 28 DAY CYCLE
     Route: 048

REACTIONS (2)
  - Non-Hodgkin^s lymphoma [Unknown]
  - Neutropenia [Unknown]

NARRATIVE: CASE EVENT DATE: 201202
